FAERS Safety Report 4847022-4 (Version None)
Quarter: 2005Q4

REPORT INFORMATION
  Report Type: 
  Country: None (occurrence: None)
  Receive Date: 20051205
  Receipt Date: 20051121
  Transmission Date: 20060501
  Serious: Yes (Other)
  Sender: FDA-Public Use
  Company Number: 2005068861

PATIENT
  Age: 62 Year
  Sex: Female
  Weight: 92.9874 kg

DRUGS (17)
  1. BEXTRA [Suspect]
     Indication: BACK PAIN
     Dosage: 20 MG (20 MG, 2 IN 1 D), ORAL
     Route: 048
     Dates: start: 20030122
  2. BEXTRA [Suspect]
     Indication: PSORIATIC ARTHROPATHY
     Dosage: 20 MG (20 MG, 2 IN 1 D), ORAL
     Route: 048
     Dates: start: 20030122
  3. BEXTRA [Suspect]
     Indication: RHEUMATOID ARTHRITIS
     Dosage: 20 MG (20 MG, 2 IN 1 D), ORAL
     Route: 048
     Dates: start: 20030122
  4. BEXTRA [Suspect]
     Indication: SPINAL OSTEOARTHRITIS
     Dosage: 20 MG (20 MG, 2 IN 1 D), ORAL
     Route: 048
     Dates: start: 20030122
  5. METHOTREXATE [Suspect]
     Indication: PSORIASIS
     Dosage: 5 MG, 1 IN 1 WK, ORAL
     Route: 048
     Dates: start: 20000315
  6. ETANERCEPT (ETANERCEPT) [Suspect]
     Indication: PSORIASIS
     Dosage: SUBCUTANEOUS
     Route: 058
     Dates: start: 20040801
  7. PROTOPIC [Suspect]
     Indication: PSORIASIS
     Dosage: TOPICAL
     Route: 061
     Dates: start: 20030201, end: 20030201
  8. KERALYT (SALICYLIC ACID) [Suspect]
     Indication: PSORIASIS
     Dosage: TOPICAL
     Route: 061
     Dates: start: 20030201, end: 20030201
  9. LOTREL [Concomitant]
  10. THEOPHYLLINE [Concomitant]
  11. ADVAIR DISKUS 100/50 [Concomitant]
  12. PROVENTIL [Concomitant]
  13. CISLOSPORIN (CICLOSPORIN) [Concomitant]
  14. OLUX (CLOBETASOL PROPIONATE) [Concomitant]
  15. CLOBETASOL (CLOBETASOL) [Concomitant]
  16. HALOG (HALCINONIDE) [Concomitant]
  17. FOLIC ACID [Concomitant]

REACTIONS (29)
  - ARTHRALGIA [None]
  - BLISTER [None]
  - CHEMICAL BURN OF SKIN [None]
  - CONDITION AGGRAVATED [None]
  - DIABETES MELLITUS NON-INSULIN-DEPENDENT [None]
  - DISEASE RECURRENCE [None]
  - DRUG EFFECT DECREASED [None]
  - DRUG INEFFECTIVE [None]
  - DRUG INTERACTION [None]
  - FATIGUE [None]
  - HEADACHE [None]
  - HERPES ZOSTER [None]
  - IMPAIRED WORK ABILITY [None]
  - LUNG DISORDER [None]
  - MALAISE [None]
  - OEDEMA PERIPHERAL [None]
  - OSTEOARTHRITIS [None]
  - PAIN [None]
  - POST INFLAMMATORY PIGMENTATION CHANGE [None]
  - PRURITUS [None]
  - PSORIASIS [None]
  - PYREXIA [None]
  - RASH MACULAR [None]
  - RASH PRURITIC [None]
  - SKIN EXFOLIATION [None]
  - SKIN HYPERTROPHY [None]
  - SKIN REACTION [None]
  - TREATMENT NONCOMPLIANCE [None]
  - UPPER RESPIRATORY TRACT INFECTION [None]
